FAERS Safety Report 19949343 (Version 1)
Quarter: 2021Q4

REPORT INFORMATION
  Report Type: Spontaneous
  Country: US (occurrence: US)
  Receive Date: 20211008
  Receipt Date: 20211008
  Transmission Date: 20220303
  Serious: No
  Sender: FDA-Public Use
  Company Number: None

PATIENT
  Age: 61 Year
  Sex: Male

DRUGS (1)
  1. MYFORTIC [Suspect]
     Active Substance: MYCOPHENOLATE SODIUM
     Indication: Renal transplant
     Dosage: ?          OTHER DOSE:350MG AM/540MG PM;
     Route: 048
     Dates: start: 20200528

REACTIONS (6)
  - Gastrointestinal motility disorder [None]
  - Diarrhoea [None]
  - Defaecation urgency [None]
  - Abdominal pain [None]
  - Abdominal pain [None]
  - Clostridium test positive [None]

NARRATIVE: CASE EVENT DATE: 20210816
